FAERS Safety Report 18694930 (Version 1)
Quarter: 2021Q1

REPORT INFORMATION
  Report Type: Spontaneous
  Country: US (occurrence: US)
  Receive Date: 20210101
  Receipt Date: 20210101
  Transmission Date: 20210419
  Serious: Yes (Life-Threatening, Hospitalization, Other)
  Sender: FDA-Public Use
  Company Number: None

PATIENT
  Age: 50 Year
  Sex: Male
  Weight: 94.5 kg

DRUGS (5)
  1. DESMOSPRESSIN 0.01% (0.1 ML/NASAL SPRAY [Suspect]
     Active Substance: DESMOPRESSIN ACETATE
     Indication: DIABETES INSIPIDUS
     Dosage: ?          QUANTITY:25 SPRAY(S);?
     Route: 055
     Dates: start: 20180818
  2. AMLODIPINE [Concomitant]
     Active Substance: AMLODIPINE BESYLATE
  3. MULTIPLE VITAMIN FOR MEN [Concomitant]
  4. VITAMIN D [Concomitant]
     Active Substance: VITAMIN D NOS
  5. ATORVASTATIN [Concomitant]
     Active Substance: ATORVASTATIN

REACTIONS (6)
  - Arthritis [None]
  - Hallucination [None]
  - Joint injury [None]
  - Seizure [None]
  - Skin discolouration [None]
  - Blood sodium abnormal [None]

NARRATIVE: CASE EVENT DATE: 20181018
